FAERS Safety Report 17948786 (Version 2)
Quarter: 2021Q2

REPORT INFORMATION
  Report Type: Spontaneous
  Country: JP (occurrence: JP)
  Receive Date: 20200626
  Receipt Date: 20210407
  Transmission Date: 20210717
  Serious: Yes (Hospitalization)
  Sender: FDA-Public Use
  Company Number: JP-AMGEN-JPNSP2020101152

PATIENT
  Age: 53 Year
  Sex: Male
  Weight: 88.3 kg

DRUGS (25)
  1. NESP [Concomitant]
     Active Substance: DARBEPOETIN ALFA
     Dosage: 40 MICROGRAM, QWK
     Route: 042
     Dates: start: 20200520, end: 20200708
  2. FESIN [SACCHARATED IRON OXIDE] [Concomitant]
     Active Substance: IRON SUCROSE
     Dosage: 40 MG, MONTHLY
     Route: 042
     Dates: end: 20180411
  3. P?TOL [SUCROFERRIC OXYHYDROXIDE] [Concomitant]
     Active Substance: SUCROFERRIC OXYHYDROXIDE
     Dosage: 1500 MG, EVERYDAY
     Route: 065
     Dates: start: 20190617, end: 20190813
  4. NESP [Concomitant]
     Active Substance: DARBEPOETIN ALFA
     Dosage: 20 UG, QW
     Route: 042
     Dates: start: 20181121, end: 20190327
  5. NESP [Concomitant]
     Active Substance: DARBEPOETIN ALFA
     Dosage: 20 MICROGRAM, QWK
     Route: 042
     Dates: start: 20191120, end: 20200429
  6. NESP [Concomitant]
     Active Substance: DARBEPOETIN ALFA
     Dosage: 60 MICROGRAM, QWK
     Route: 042
     Dates: start: 20200911, end: 20200916
  7. NESP [Concomitant]
     Active Substance: DARBEPOETIN ALFA
     Dosage: 50 UG, QW
     Route: 042
     Dates: start: 20190515, end: 20190703
  8. NESP [Concomitant]
     Active Substance: DARBEPOETIN ALFA
     Dosage: 30 MICROGRAM, QWK
     Route: 042
     Dates: start: 20191030, end: 20191113
  9. OXAROL [Concomitant]
     Active Substance: MAXACALCITOL
     Dosage: 5 UG, Q84H
     Route: 042
     Dates: start: 20201007
  10. FESIN [SACCHARATED IRON OXIDE] [Concomitant]
     Active Substance: IRON SUCROSE
     Dosage: 40 MG, MONTHLY
     Route: 042
     Dates: start: 20200513, end: 20200513
  11. KIKLIN [Concomitant]
     Active Substance: BIXALOMER
     Dosage: 2250 MG, EVERYDAY
     Route: 065
     Dates: start: 20180813
  12. PARSABIV [Suspect]
     Active Substance: ETELCALCETIDE HYDROCHLORIDE
     Dosage: 10 UNK
     Route: 010
     Dates: start: 20190109
  13. NESP [Concomitant]
     Active Substance: DARBEPOETIN ALFA
     Dosage: 30 MICROGRAM, QWK
     Route: 042
     Dates: start: 20200506, end: 20200513
  14. RIONA [Concomitant]
     Active Substance: FERRIC CITRATE ANHYDROUS
     Dosage: 2250 MG, EVERYDAY
     Route: 065
     Dates: end: 20190616
  15. PARSABIV [Suspect]
     Active Substance: ETELCALCETIDE HYDROCHLORIDE
     Indication: HYPERPARATHYROIDISM SECONDARY
     Dosage: 5 MILLIGRAM
     Route: 010
     Dates: start: 20180404, end: 20190107
  16. NESP [Concomitant]
     Active Substance: DARBEPOETIN ALFA
     Dosage: 30 UG, QW
     Route: 042
     Dates: start: 20190403, end: 20190403
  17. NESP [Concomitant]
     Active Substance: DARBEPOETIN ALFA
     Dosage: 40 UG, QW
     Route: 042
     Dates: start: 20190410, end: 20190508
  18. NESP [Concomitant]
     Active Substance: DARBEPOETIN ALFA
     Dosage: 40 UG, QW
     Route: 042
     Dates: start: 20190710, end: 20190807
  19. OXAROL [Concomitant]
     Active Substance: MAXACALCITOL
     Dosage: 2.5 UG, Q56H
     Route: 042
     Dates: start: 20171206, end: 20201005
  20. FESIN [SACCHARATED IRON OXIDE] [Concomitant]
     Active Substance: IRON SUCROSE
     Dosage: 40 MG, QW
     Route: 042
     Dates: start: 20200527, end: 20210224
  21. NESP [Concomitant]
     Active Substance: DARBEPOETIN ALFA
     Dosage: 60 MICROGRAM, QWK
     Route: 042
     Dates: start: 20200715, end: 20200811
  22. FESIN [SACCHARATED IRON OXIDE] [Concomitant]
     Active Substance: IRON SUCROSE
     Dosage: 20 MG, QW
     Route: 042
     Dates: start: 20200520, end: 20200520
  23. FESIN [SACCHARATED IRON OXIDE] [Concomitant]
     Active Substance: IRON SUCROSE
     Dosage: 20 MG, QW
     Route: 042
     Dates: start: 20210303
  24. KIKLIN [Concomitant]
     Active Substance: BIXALOMER
     Dosage: 1500 MG, EVERYDAY
     Route: 065
     Dates: start: 20180409, end: 20180812
  25. NESP [Concomitant]
     Active Substance: DARBEPOETIN ALFA
     Dosage: 40 MICROGRAM, QWK
     Route: 042
     Dates: start: 20190814, end: 20191023

REACTIONS (1)
  - Heat illness [Recovering/Resolving]

NARRATIVE: CASE EVENT DATE: 20200605
